FAERS Safety Report 23660851 (Version 2)
Quarter: 2024Q2

REPORT INFORMATION
  Report Type: Spontaneous
  Country: RU (occurrence: None)
  Receive Date: 20240322
  Receipt Date: 20240403
  Transmission Date: 20240716
  Serious: Yes (Other)
  Sender: FDA-Public Use
  Company Number: RU-ROCHE-3525707

PATIENT
  Age: 46 Year

DRUGS (2)
  1. ATEZOLIZUMAB [Suspect]
     Active Substance: ATEZOLIZUMAB
     Indication: Breast cancer
     Dosage: DAYS 1 AND 15
     Route: 042
     Dates: start: 202308
  2. PACLITAXEL [Suspect]
     Active Substance: PACLITAXEL
     Indication: Breast cancer
     Dosage: DAYS 1, 8, 15
     Route: 042
     Dates: start: 202308

REACTIONS (2)
  - Neutropenia [Unknown]
  - Alopecia [Unknown]

NARRATIVE: CASE EVENT DATE: 20230801
